FAERS Safety Report 5384358-5 (Version None)
Quarter: 2007Q3

REPORT INFORMATION
  Report Type: 
  Country: None (occurrence: None)
  Receive Date: 20070710
  Receipt Date: 20060922
  Transmission Date: 20080115
  Serious: Yes (Hospitalization)
  Sender: FDA-Public Use
  Company Number: 2006-02448

PATIENT
  Age: 75 Year
  Sex: Female
  Weight: 102 kg

DRUGS (7)
  1. VELCADE [Suspect]
     Indication: MULTIPLE MYELOMA
     Dosage: IV BOLUS
     Route: 040
     Dates: end: 20060905
  2. AREDIA [Concomitant]
  3. ULTRACET [Concomitant]
  4. DILAUDID [Concomitant]
  5. SYNTHROID [Concomitant]
  6. PREMARIN [Concomitant]
  7. ELAVIL (AMITRIPTYLINE HYDROCHOLORIDE) [Concomitant]

REACTIONS (1)
  - DYSPNOEA [None]
